FAERS Safety Report 8017664-6 (Version None)
Quarter: 2012Q1

REPORT INFORMATION
  Report Type: 
  Country: None (occurrence: None)
  Receive Date: 20120103
  Receipt Date: 20111220
  Transmission Date: 20120608
  Serious: Yes (Hospitalization)
  Sender: FDA-Public Use
  Company Number: JP-JNJFOC-20111003538

PATIENT
  Sex: Female
  Weight: 40 kg

DRUGS (6)
  1. REMICADE [Suspect]
     Dosage: 2 TOTAL INFUSIONS
     Route: 042
     Dates: start: 20090205
  2. REMICADE [Suspect]
     Indication: RHEUMATOID ARTHRITIS
     Route: 042
     Dates: start: 20090122
  3. RHEUMATREX [Suspect]
     Indication: MUSCULOSKELETAL PAIN
     Route: 048
     Dates: start: 20051001
  4. PREDNISOLONE [Suspect]
     Indication: MUSCULOSKELETAL PAIN
     Route: 048
     Dates: start: 20051001
  5. PREDNISOLONE [Suspect]
     Indication: RHEUMATOID ARTHRITIS
     Route: 065
  6. AZULFIDINE [Suspect]
     Indication: MUSCULOSKELETAL PAIN
     Route: 048
     Dates: start: 20051001

REACTIONS (3)
  - TENOSYNOVITIS [None]
  - GRANULOMA [None]
  - MYCOBACTERIUM AVIUM COMPLEX INFECTION [None]
